FAERS Safety Report 23753040 (Version 1)
Quarter: 2024Q2

REPORT INFORMATION
  Report Type: Report from Study
  Country: ZA (occurrence: ZA)
  Receive Date: 20240417
  Receipt Date: 20240417
  Transmission Date: 20240716
  Serious: Yes (Hospitalization)
  Sender: FDA-Public Use
  Company Number: ZA-ABBVIE-5721925

PATIENT
  Age: 71 Year
  Sex: Male

DRUGS (2)
  1. BOTOX [Suspect]
     Active Substance: ONABOTULINUMTOXINA
     Indication: Torticollis
     Dosage: TIME INTERVAL: AS NECESSARY: FORM STRENGTH: 200 UNIT
     Route: 065
     Dates: start: 20220719, end: 20220719
  2. BOTOX [Suspect]
     Active Substance: ONABOTULINUMTOXINA
     Indication: Torticollis
     Dosage: TIME INTERVAL: AS NECESSARY
     Route: 065
     Dates: start: 20240206, end: 20240206

REACTIONS (1)
  - Eye operation [Unknown]
